FAERS Safety Report 8510537-1 (Version None)
Quarter: 2012Q3

REPORT INFORMATION
  Report Type: 
  Country: None (occurrence: None)
  Receive Date: 20120716
  Receipt Date: 20120705
  Transmission Date: 20120928
  Serious: Yes (Other)
  Sender: FDA-Public Use
  Company Number: JP-BRISTOL-MYERS SQUIBB COMPANY-16452849

PATIENT
  Age: 29 Year
  Sex: Female
  Weight: 52 kg

DRUGS (4)
  1. ABILIFY [Suspect]
     Indication: BIPOLAR DISORDER
     Dosage: DOSE 3MG
     Route: 048
     Dates: start: 20110714, end: 20120201
  2. BENZODIAZEPINE [Concomitant]
  3. AMOXAPINE [Concomitant]
     Dosage: CAPS
     Dates: start: 20101204, end: 20120201
  4. ZOLOFT [Concomitant]
     Dosage: TAB
     Dates: start: 20101217, end: 20120201

REACTIONS (5)
  - CAESAREAN SECTION [None]
  - NORMAL NEWBORN [None]
  - PREGNANCY [None]
  - PREMATURE LABOUR [None]
  - MATERNAL EXPOSURE DURING PREGNANCY [None]
